FAERS Safety Report 13943982 (Version 1)
Quarter: 2017Q3

REPORT INFORMATION
  Report Type: Spontaneous
  Country: US (occurrence: US)
  Receive Date: 20170907
  Receipt Date: 20170907
  Transmission Date: 20171128
  Serious: No
  Sender: FDA-Public Use
  Company Number: US-ROCHE-1438191

PATIENT
  Sex: Female

DRUGS (2)
  1. RITUXAN [Suspect]
     Active Substance: RITUXIMAB
     Indication: NON-HODGKIN^S LYMPHOMA
     Route: 065
  2. RITUXAN [Suspect]
     Active Substance: RITUXIMAB
     Indication: NON-HODGKIN^S LYMPHOMA

REACTIONS (7)
  - Fatigue [Unknown]
  - Nasopharyngitis [Unknown]
  - Burning sensation [Unknown]
  - Feeling hot [Unknown]
  - Hyperhidrosis [Unknown]
  - Back pain [Unknown]
  - Musculoskeletal pain [Unknown]
